FAERS Safety Report 12447225 (Version 1)
Quarter: 2016Q2

REPORT INFORMATION
  Report Type: Spontaneous
  Country: US (occurrence: None)
  Receive Date: 20160607
  Receipt Date: 20160607
  Transmission Date: 20160815
  Serious: Yes (Disabling)
  Sender: FDA-Public Use
  Company Number: None

PATIENT
  Age: 75 Year
  Sex: Male
  Weight: 108.86 kg

DRUGS (16)
  1. ISOSORBIDE MN ER [Concomitant]
     Active Substance: ISOSORBIDE
  2. POT CHLORIDE [Concomitant]
     Active Substance: POTASSIUM CHLORIDE
  3. LIPITOR [Concomitant]
     Active Substance: ATORVASTATIN CALCIUM
  4. ALPRAZOLAM. [Concomitant]
     Active Substance: ALPRAZOLAM
  5. OPEPROZOLE [Concomitant]
  6. AMLODIPINE BESYLATE. [Concomitant]
     Active Substance: AMLODIPINE BESYLATE
  7. CENTRUM SILVER VITAMINS [Concomitant]
  8. OXYCODONE [Concomitant]
     Active Substance: OXYCODONE
  9. RANEXA [Suspect]
     Active Substance: RANOLAZINE
     Indication: ANGINA PECTORIS
     Route: 048
     Dates: start: 20160406, end: 20160415
  10. ASPIRIN. [Concomitant]
     Active Substance: ASPIRIN
  11. MOVE FREE JOINT REL [Concomitant]
  12. SPIRONOLACTON [Concomitant]
     Active Substance: SPIRONOLACTONE
  13. TRAMADOL. [Concomitant]
     Active Substance: TRAMADOL
  14. HYDROCHLORITHIAZIDE [Concomitant]
     Active Substance: HYDROCHLOROTHIAZIDE
  15. METOPROLOL SUCC [Concomitant]
     Active Substance: METOPROLOL SUCCINATE
  16. DOXAZOSIN [Concomitant]
     Active Substance: DOXAZOSIN\DOXAZOSIN MESYLATE

REACTIONS (4)
  - Angina pectoris [None]
  - Dizziness [None]
  - Constipation [None]
  - Fall [None]

NARRATIVE: CASE EVENT DATE: 20160406
